FAERS Safety Report 5839091-X (Version None)
Quarter: 2008Q3

REPORT INFORMATION
  Report Type: 
  Country: None (occurrence: None)
  Receive Date: 20080808
  Receipt Date: 20080730
  Transmission Date: 20090109
  Serious: Yes (Hospitalization)
  Sender: FDA-Public Use
  Company Number: JP-AMGEN-US293847

PATIENT
  Sex: Female
  Weight: 51 kg

DRUGS (5)
  1. ENBREL [Suspect]
     Indication: RHEUMATOID ARTHRITIS
     Dosage: 25 MG AND MTX PBO
     Route: 058
     Dates: start: 20080516, end: 20080624
  2. FLUCONAZOLE [Concomitant]
     Indication: TINEA INFECTION
     Dosage: UNKNOWN
  3. CLOBETASOL PROPIONATE [Concomitant]
     Indication: TINEA INFECTION
     Dosage: UNKNOWN
  4. ALENDRONATE SODIUM [Concomitant]
     Indication: OSTEOPOROSIS
     Dosage: UNKNOWN
     Dates: start: 20071101
  5. TEPRENONE [Concomitant]
     Indication: GASTRITIS PROPHYLAXIS
     Dosage: UNKNOWN
     Dates: start: 20071101

REACTIONS (1)
  - THYROIDITIS SUBACUTE [None]
